FAERS Safety Report 8286709-0 (Version None)
Quarter: 2012Q2

REPORT INFORMATION
  Report Type: 
  Country: None (occurrence: None)
  Receive Date: 20120416
  Receipt Date: 20120402
  Transmission Date: 20120825
  Serious: Yes (Death)
  Sender: FDA-Public Use
  Company Number: GT-NOVOPROD-348892

PATIENT
  Age: 25 Year
  Sex: Male
  Weight: 60 kg

DRUGS (7)
  1. NOVOSEVEN RT [Suspect]
     Indication: COAGULOPATHY
     Dosage: 5 MG, QD
     Route: 042
     Dates: start: 20120401, end: 20120401
  2. VINCRISTINE [Concomitant]
     Dosage: 2 MG, QD
  3. METHOTREXATE [Concomitant]
     Dosage: 1000 MG/M2, QD
  4. CYTARABINE [Concomitant]
     Dosage: 3000 MG/M2, QD
  5. DOXORUBICIN HCL [Concomitant]
     Dosage: 50 MG/M2, QD
  6. CYCLOPHOSPHAMIDE [Concomitant]
     Dosage: 300 MG/M2, QD
  7. DEXAMETHASONE [Concomitant]
     Dosage: 40 MG/M2, QD

REACTIONS (1)
  - CEREBRAL HAEMORRHAGE [None]
